FAERS Safety Report 9690263 (Version 1)
Quarter: 2013Q4

REPORT INFORMATION
  Report Type: Spontaneous
  Country: US (occurrence: US)
  Receive Date: 20131115
  Receipt Date: 20131115
  Transmission Date: 20140711
  Serious: Yes (Death)
  Sender: FDA-Public Use
  Company Number: US-LUNDBECK-DKLU1095240

PATIENT
  Sex: Male

DRUGS (6)
  1. SABRIL (FOR ORAL SOLUTION) [Suspect]
     Indication: INFANTILE SPASMS
     Dates: start: 20131008
  2. SABRIL (FOR ORAL SOLUTION) [Suspect]
  3. SABRIL (FOR ORAL SOLUTION) [Suspect]
  4. SABRIL (FOR ORAL SOLUTION) [Suspect]
  5. SABRIL (FOR ORAL SOLUTION) [Suspect]
  6. ACTHAR [Concomitant]
     Indication: PRODUCT USED FOR UNKNOWN INDICATION

REACTIONS (1)
  - Death [Fatal]
